FAERS Safety Report 7197239-1 (Version None)
Quarter: 2010Q4

REPORT INFORMATION
  Report Type: 
  Country: None (occurrence: None)
  Receive Date: 20101224
  Receipt Date: 20101214
  Transmission Date: 20110411
  Serious: Yes (Other)
  Sender: FDA-Public Use
  Company Number: PHHY2010JP86643

PATIENT
  Age: 52 Year
  Sex: Female

DRUGS (1)
  1. INTERFERON BETA-1B [Suspect]
     Indication: RELAPSING-REMITTING MULTIPLE SCLEROSIS

REACTIONS (7)
  - CSF CELL COUNT INCREASED [None]
  - CSF PROTEIN INCREASED [None]
  - MENINGITIS [None]
  - MULTIPLE SCLEROSIS RELAPSE [None]
  - MYELITIS [None]
  - PLEOCYTOSIS [None]
  - QUADRIPLEGIA [None]
